FAERS Safety Report 6532962-0 (Version None)
Quarter: 2010Q1

REPORT INFORMATION
  Report Type: 
  Country: None (occurrence: None)
  Receive Date: 20100111
  Receipt Date: 20100104
  Transmission Date: 20100710
  Serious: Yes (Hospitalization, Other)
  Sender: FDA-Public Use
  Company Number: BR-BRISTOL-MYERS SQUIBB COMPANY-14923270

PATIENT
  Age: 77 Year
  Sex: Female
  Weight: 62 kg

DRUGS (6)
  1. APROVEL TABS 300 MG [Suspect]
     Indication: CARDIAC DISORDER
     Route: 048
     Dates: start: 20080101
  2. ATENOLOL [Concomitant]
     Indication: CARDIAC DISORDER
     Dosage: 1DF=1 TABLET;MORE THAN 1YR AGO.
     Route: 048
  3. LIPITOR [Concomitant]
     Indication: CARDIAC DISORDER
     Dosage: 1/2 TAB AT NIGHT OF 40MG; 1YR AGO.
     Route: 048
  4. LORAX [Concomitant]
     Indication: FEELING OF RELAXATION
     Dosage: 1DF=1TABLET;2YRS AGO.
     Route: 048
  5. MAREVAN [Concomitant]
     Indication: THROMBOSIS
     Dosage: 1DF=1/4 TABLET;2MONTHS AGO.
     Route: 048
  6. VENOCUR TRIPLEX [Concomitant]
     Indication: THROMBOSIS
     Dosage: 1DF=1TABLET;1MONTH AGO.
     Route: 048

REACTIONS (6)
  - BURNING SENSATION [None]
  - DEEP VEIN THROMBOSIS [None]
  - ERYTHEMA [None]
  - OEDEMA PERIPHERAL [None]
  - PAIN IN EXTREMITY [None]
  - PHLEBITIS [None]
